FAERS Safety Report 6218960-5 (Version None)
Quarter: 2009Q2

REPORT INFORMATION
  Report Type: 
  Country: None (occurrence: None)
  Receive Date: 20090608
  Receipt Date: 20090529
  Transmission Date: 20091009
  Serious: Yes (Hospitalization, Other)
  Sender: FDA-Public Use
  Company Number: PHHY2009MX21191

PATIENT
  Age: 77 Year
  Sex: Female

DRUGS (3)
  1. DIOVAN [Suspect]
     Indication: HYPERTENSION
     Dosage: 1 TABLET (80 MG) PER DAY
     Route: 048
     Dates: start: 20090501, end: 20090525
  2. METOPROLOL SUCCINATE [Concomitant]
     Indication: HYPERTENSION
     Dosage: 1.5 TABLETS
     Dates: start: 20070101
  3. OMEPRAZOL [Concomitant]
     Indication: GASTRITIS
     Dosage: 1 TABLET PER DAY
     Dates: start: 20070101

REACTIONS (2)
  - HYPERTENSION [None]
  - TACHYCARDIA [None]
